FAERS Safety Report 17157143 (Version 1)
Quarter: 2019Q4

REPORT INFORMATION
  Report Type: Spontaneous
  Country: BE (occurrence: BE)
  Receive Date: 20191216
  Receipt Date: 20191216
  Transmission Date: 20200122
  Serious: Yes (Other)
  Sender: FDA-Public Use
  Company Number: BE-ACCORD-165460

PATIENT
  Sex: Male
  Weight: 69 kg

DRUGS (2)
  1. CISPLATIN. [Suspect]
     Active Substance: CISPLATIN
     Indication: SMALL CELL LUNG CANCER
     Dosage: UNK (3 CYCLES)
     Route: 065
     Dates: start: 20180314, end: 20180427
  2. ETOPOSIDE. [Suspect]
     Active Substance: ETOPOSIDE
     Indication: SMALL CELL LUNG CANCER
     Dosage: UNK 3 CYCLES
     Route: 065
     Dates: start: 20180314, end: 20180427

REACTIONS (1)
  - Disease progression [Unknown]
